FAERS Safety Report 8831277 (Version 1)
Quarter: 2012Q4

REPORT INFORMATION
  Report Type: 
  Country: US (occurrence: US)
  Receive Date: 20121008
  Receipt Date: 20121008
  Transmission Date: 20130627
  Serious: No
  Sender: FDA-Public Use
  Company Number: US-009507513-1209USA010290

PATIENT
  Age: 64 None
  Sex: Male

DRUGS (7)
  1. PEG-INTRON [Suspect]
     Indication: HEPATITIS C
     Dosage: 150 Microgram, qw
     Route: 058
     Dates: start: 20120914
  2. REBETOL [Suspect]
     Indication: HEPATITIS C
     Dosage: 200 mg, UNK
     Dates: start: 20120914
  3. TELAPREVIR [Suspect]
     Indication: HEPATITIS C
     Dosage: 375 mg, (4X42 tabs)
     Dates: start: 20120914
  4. MIRALAX [Concomitant]
     Dosage: 3350 NF
  5. CITRACAL [Concomitant]
     Dosage: PLS
  6. OMEGA-3 MARINE TRIGLYCERIDES [Concomitant]
  7. CHOLECALCIFEROL [Concomitant]
     Dosage: 2000UNIT

REACTIONS (5)
  - Occult blood [Unknown]
  - Abdominal distension [Unknown]
  - Dyspnoea [Unknown]
  - Asthenia [Unknown]
  - Anaemia [Unknown]
